FAERS Safety Report 11326074 (Version 1)
Quarter: 2015Q3

REPORT INFORMATION
  Report Type: Spontaneous
  Country: US (occurrence: None)
  Receive Date: 20150629
  Receipt Date: 20150629
  Transmission Date: 20151125
  Serious: No
  Sender: FDA-Public Use
  Company Number: A-US2015-110929

PATIENT
  Age: 46 Year
  Sex: Female

DRUGS (13)
  1. OPSUMIT [Suspect]
     Active Substance: MACITENTAN
     Indication: PULMONARY ARTERIAL HYPERTENSION
     Route: 048
     Dates: start: 20141204
  2. RIOCIGUAT (RIOCIGUAT) [Concomitant]
     Active Substance: RIOCIGUAT
  3. AMBIEN [Concomitant]
     Active Substance: ZOLPIDEM TARTRATE
  4. METAXALONE (METAXALONE) [Concomitant]
     Active Substance: METAXALONE
  5. FUROSEMIDE (FUROSEMIDE) [Concomitant]
     Active Substance: FUROSEMIDE
  6. METOLAZONE (METOLAZONE) (METOLAZONE) [Concomitant]
     Active Substance: METOLAZONE
  7. COLCRYS [Concomitant]
     Active Substance: COLCHICINE
  8. PRILOSEC (OMEPRAZOLE) [Concomitant]
     Active Substance: OMEPRAZOLE MAGNESIUM
  9. TYLENOL [Concomitant]
     Active Substance: ACETAMINOPHEN
  10. LEVOTHYROXINE (LEVOTHYROXINE) [Concomitant]
     Active Substance: LEVOTHYROXINE
  11. XARELTO [Concomitant]
     Active Substance: RIVAROXABAN
  12. POTASSIUM (POTASSIUM) [Concomitant]
     Active Substance: POTASSIUM
  13. OXYGEN (OXYGEN) [Concomitant]
     Active Substance: OXYGEN

REACTIONS (2)
  - Chest pain [None]
  - Chest discomfort [None]

NARRATIVE: CASE EVENT DATE: 20141231
